FAERS Safety Report 25886494 (Version 1)
Quarter: 2025Q4

REPORT INFORMATION
  Report Type: Spontaneous
  Country: US (occurrence: US)
  Receive Date: 20251006
  Receipt Date: 20251006
  Transmission Date: 20260118
  Serious: Yes (Other)
  Sender: TEVA
  Company Number: US-TEVA-VS-3377547

PATIENT
  Age: 65 Year
  Sex: Female

DRUGS (1)
  1. QVAR REDIHALER [Suspect]
     Active Substance: BECLOMETHASONE DIPROPIONATE
     Indication: Asthma
     Dosage: 80MCG/DOSE, INHALATION AEROSOL
     Route: 065

REACTIONS (4)
  - Pneumonia [Recovered/Resolved]
  - Device defective [Unknown]
  - Bronchitis [Recovered/Resolved]
  - Drug dose omission by device [Unknown]

NARRATIVE: CASE EVENT DATE: 20250701
